FAERS Safety Report 21869708 (Version 1)
Quarter: 2023Q1

REPORT INFORMATION
  Report Type: Other
  Country: US (occurrence: None)
  Receive Date: 20230117
  Receipt Date: 20230117
  Transmission Date: 20230417
  Serious: No
  Sender: FDA-Public Use
  Company Number: US-ROCHE-2631015

PATIENT
  Age: 63 Year
  Sex: Female
  Weight: 51.302 kg

DRUGS (2)
  1. OCREVUS [Suspect]
     Active Substance: OCRELIZUMAB
     Indication: Primary progressive multiple sclerosis
     Route: 065
     Dates: start: 20191111
  2. OCREVUS [Suspect]
     Active Substance: OCRELIZUMAB
     Route: 065
     Dates: start: 2018

REACTIONS (4)
  - Contusion [Not Recovered/Not Resolved]
  - Eye infection [Recovered/Resolved]
  - COVID-19 [Recovering/Resolving]
  - Hordeolum [Recovered/Resolved]

NARRATIVE: CASE EVENT DATE: 20200501
